FAERS Safety Report 10083495 (Version 1)
Quarter: 2014Q2

REPORT INFORMATION
  Report Type: Spontaneous
  Country: US (occurrence: None)
  Receive Date: 20140416
  Receipt Date: 20140416
  Transmission Date: 20141212
  Serious: Yes (Hospitalization)
  Sender: FDA-Public Use
  Company Number: None

PATIENT
  Age: 69 Year
  Sex: Male
  Weight: 131.5 kg

DRUGS (2)
  1. CYTARABINE [Suspect]
  2. DAUNORUBICIN [Suspect]

REACTIONS (8)
  - Dizziness [None]
  - Febrile neutropenia [None]
  - Enterobacter test positive [None]
  - Clostridium test positive [None]
  - Musculoskeletal chest pain [None]
  - Pulmonary mass [None]
  - Pneumonia fungal [None]
  - Blood culture positive [None]
